FAERS Safety Report 25915248 (Version 1)
Quarter: 2025Q4

REPORT INFORMATION
  Report Type: Spontaneous
  Country: US (occurrence: US)
  Receive Date: 20251013
  Receipt Date: 20251013
  Transmission Date: 20260118
  Serious: Yes (Hospitalization)
  Sender: FRESENIUS KABI
  Company Number: US-FreseniusKabi-FK202513734

PATIENT
  Age: 68 Year
  Sex: Male
  Weight: 54 kg

DRUGS (11)
  1. FLUOROURACIL [Suspect]
     Active Substance: FLUOROURACIL
     Indication: Colorectal cancer
     Dosage: FOA: INFUSION?ON DAYS 1 AND 15 OF EACH 28-DAY CYCLE
     Route: 040
     Dates: start: 20250428, end: 20250428
  2. FLUOROURACIL [Suspect]
     Active Substance: FLUOROURACIL
     Dosage: FOA: INFUSION?ON DAYS 1 AND 15 OF EACH 28-DAY CYCLE
     Route: 042
     Dates: start: 20250428, end: 20250430
  3. FLUOROURACIL [Suspect]
     Active Substance: FLUOROURACIL
     Dosage: FOA: INFUSION?ON DAYS 1 AND 15 OF EACH 28-DAY CYCLE
     Route: 042
     Dates: start: 20250825, end: 20250827
  4. LEUCOVORIN [Suspect]
     Active Substance: LEUCOVORIN\LEUCOVORIN CALCIUM
     Indication: Colorectal cancer
     Dosage: ON DAYS 1 AND 15 OF EACH 28-DAY CYCLE ?FOA: INFUSION
     Route: 042
     Dates: start: 20250428, end: 20250428
  5. LEUCOVORIN [Suspect]
     Active Substance: LEUCOVORIN\LEUCOVORIN CALCIUM
     Dosage: ON DAYS 1 AND 15 OF EACH 28-DAY CYCLE?FOA: INFUSION
     Route: 042
     Dates: start: 20250825, end: 20250825
  6. OXALIPLATIN [Suspect]
     Active Substance: OXALIPLATIN
     Indication: Colorectal cancer
     Dosage: FOA: INFUSION?ON DAYS 1 AND 15 OF EACH 28-DAY CYCLE
     Route: 042
     Dates: start: 20250428, end: 20250428
  7. OXALIPLATIN [Suspect]
     Active Substance: OXALIPLATIN
     Dosage: FOA: INFUSION?ON DAYS 1 AND 15 OF EACH 28-DAY CYCLE
     Route: 042
     Dates: start: 20250825, end: 20250825
  8. BEVACIZUMAB [Suspect]
     Active Substance: BEVACIZUMAB
     Indication: Colorectal cancer
     Dosage: ON DAYS 1 AND 15 OF EACH 28-DAY CYCLE ?FOA: INFUSION
     Route: 042
     Dates: start: 20250428, end: 20250428
  9. BEVACIZUMAB [Suspect]
     Active Substance: BEVACIZUMAB
     Dosage: ON DAYS 1 AND 15 OF EACH 28-DAY CYCLE?FOA: INFUSION
     Route: 042
     Dates: start: 20250825, end: 20250825
  10. INCA-33890 [Suspect]
     Active Substance: INCA-33890
     Indication: Colorectal cancer
     Dosage: ON DAYS 1 AND 15 OF EACH 28-DAY CYCLE ?FOA: INFUSION?28-APR-2025 12:21 :00 / 28-APR-2025 13:55:00; 1
     Route: 042
     Dates: start: 20250428, end: 20250428
  11. INCA-33890 [Suspect]
     Active Substance: INCA-33890
     Dosage: ON DAYS 1 AND 15 OF EACH 28-DAY CYCLE?FOA: INFUSION?25-AUG-2025 10:34:00 / 25-AUG-2025 12:14:00; 1 H
     Route: 042
     Dates: start: 20250825, end: 20250825

REACTIONS (5)
  - Weight decreased [Not Recovered/Not Resolved]
  - Decreased appetite [Unknown]
  - Vomiting [Unknown]
  - Dysgeusia [Unknown]
  - Dry mouth [Unknown]

NARRATIVE: CASE EVENT DATE: 20250923
